FAERS Safety Report 13777498 (Version 1)
Quarter: 2017Q3

REPORT INFORMATION
  Report Type: Spontaneous
  Country: US (occurrence: US)
  Receive Date: 20170721
  Receipt Date: 20170721
  Transmission Date: 20171127
  Serious: No
  Sender: FDA-Public Use
  Company Number: US-BAUSCH-BL-2017-008539

PATIENT
  Sex: Male
  Weight: 78.09 kg

DRUGS (1)
  1. BRIMONIDINE TARTRATE OPHTHALMIC SOLUTION 0.2% [Suspect]
     Active Substance: BRIMONIDINE TARTRATE
     Indication: GLAUCOMA
     Route: 047
     Dates: start: 2016, end: 201702

REACTIONS (2)
  - Conjunctivitis [Recovered/Resolved]
  - Product contamination [Unknown]

NARRATIVE: CASE EVENT DATE: 201702
